FAERS Safety Report 9938150 (Version 2)
Quarter: 2014Q1

REPORT INFORMATION
  Report Type: Report from Study
  Country: US (occurrence: US)
  Receive Date: 20140303
  Receipt Date: 20140303
  Transmission Date: 20141002
  Serious: Yes (Death, Life-Threatening, Hospitalization)
  Sender: FDA-Public Use
  Company Number: US-SHIRE-ALL1-2014-01070

PATIENT
  Age: 13 Year
  Sex: Male
  Weight: 50 kg

DRUGS (4)
  1. IDURSULFASE [Suspect]
     Indication: MUCOPOLYSACCHARIDOSIS II
     Dosage: 30 MG, 1X/WEEK
     Route: 041
     Dates: start: 20080502, end: 201402
  2. IDURSULFASE [Suspect]
     Dosage: 0.5 MG/KG, UNKNOWN
     Route: 041
     Dates: start: 20060928
  3. FLUTICASONE [Concomitant]
     Indication: RESPIRATORY DISORDER
     Dosage: UNK (4 PUFFS), 1X/DAY:QD
     Route: 055
     Dates: start: 20130603
  4. PREDNISOLONE [Concomitant]
     Indication: PREMEDICATION
     Dosage: 6.75 ML, 1X/WEEK
     Route: 048
     Dates: start: 201101

REACTIONS (3)
  - Pneumonia [Fatal]
  - Respiratory failure [Fatal]
  - Acute respiratory distress syndrome [Recovering/Resolving]
